FAERS Safety Report 6440413-X (Version None)
Quarter: 2009Q4

REPORT INFORMATION
  Report Type: 
  Country: None (occurrence: None)
  Receive Date: 20091113
  Receipt Date: 20091113
  Transmission Date: 20100525
  Serious: Yes (Hospitalization, Other)
  Sender: FDA-Public Use
  Company Number: US-PFIZER INC-2009256678

PATIENT
  Sex: Female
  Weight: 53 kg

DRUGS (1)
  1. CELEBREX [Suspect]
     Indication: JUVENILE ARTHRITIS
     Dosage: 200 MG, 1X/DAY
     Route: 048
     Dates: start: 20090801

REACTIONS (6)
  - ANAEMIA [None]
  - CEREBROVASCULAR ACCIDENT [None]
  - HEMIPLEGIA [None]
  - LYME DISEASE [None]
  - STREPTOCOCCUS TEST POSITIVE [None]
  - URINARY TRACT INFECTION [None]
